FAERS Safety Report 8189293-5 (Version None)
Quarter: 2012Q1

REPORT INFORMATION
  Report Type: 
  Country: None (occurrence: None)
  Receive Date: 20120307
  Receipt Date: 20120223
  Transmission Date: 20120608
  Serious: Yes (Disabling)
  Sender: FDA-Public Use
  Company Number: GB-RANBAXY-2012R1-53240

PATIENT
  Age: 70 Year
  Sex: Female

DRUGS (5)
  1. ALGESAL [Concomitant]
     Indication: ARTHRALGIA
     Dosage: UNK
     Route: 061
     Dates: start: 20111118
  2. ALGESAL [Concomitant]
     Indication: PAIN IN EXTREMITY
  3. ESCITALOPRAM [Concomitant]
     Indication: DEPRESSION
  4. ESCITALOPRAM [Concomitant]
     Indication: ANXIETY
     Dosage: UNK
     Route: 048
     Dates: start: 20111028
  5. CO-DYDRAMOL [Suspect]
     Indication: ANALGESIC THERAPY
     Dosage: UNK
     Route: 048
     Dates: start: 20111118, end: 20111120

REACTIONS (11)
  - VOMITING [None]
  - LIP SWELLING [None]
  - NAUSEA [None]
  - RASH [None]
  - BACK PAIN [None]
  - ABDOMINAL PAIN UPPER [None]
  - CONSTIPATION [None]
  - DIZZINESS [None]
  - HEADACHE [None]
  - INCREASED TENDENCY TO BRUISE [None]
  - VERTIGO [None]
